FAERS Safety Report 18338415 (Version 3)
Quarter: 2020Q4

REPORT INFORMATION
  Report Type: Other
  Country: US (occurrence: US)
  Receive Date: 20201002
  Receipt Date: 20201111
  Transmission Date: 20210113
  Serious: Yes (Other)
  Sender: FDA-Public Use
  Company Number: US-ROCHE-2570038

PATIENT
  Sex: Female
  Weight: 79.45 kg

DRUGS (4)
  1. OCREVUS [Suspect]
     Active Substance: OCRELIZUMAB
     Route: 042
     Dates: start: 201707
  2. OCREVUS [Suspect]
     Active Substance: OCRELIZUMAB
     Route: 042
  3. OCREVUS [Suspect]
     Active Substance: OCRELIZUMAB
     Indication: RELAPSING MULTIPLE SCLEROSIS
     Dosage: ON 01/MAR/2020 AND 03/APR/2020, RECEIVED OCRELIZUMAB OF AN UNKNOWN DOSAGE FORM
     Route: 042
     Dates: start: 2018
  4. OCREVUS [Suspect]
     Active Substance: OCRELIZUMAB
     Dosage: ON DAY 1 AND DAY 15
     Route: 042
     Dates: start: 2017

REACTIONS (5)
  - Urinary tract infection [Recovered/Resolved]
  - Alopecia [Not Recovered/Not Resolved]
  - Fall [Unknown]
  - Multiple sclerosis relapse [Unknown]
  - Genital herpes [Unknown]

NARRATIVE: CASE EVENT DATE: 2018
